FAERS Safety Report 4590808-4 (Version None)
Quarter: 2005Q1

REPORT INFORMATION
  Report Type: 
  Country: None (occurrence: None)
  Receive Date: 20050222
  Receipt Date: 20050222
  Transmission Date: 20050727
  Serious: Yes (Death)
  Sender: FDA-Public Use
  Company Number: None

PATIENT
  Age: 78 Year
  Sex: Female

DRUGS (16)
  1. TAXOTERE [Suspect]
     Indication: GASTRIC CANCER
     Dosage: 320 MG IV
     Route: 042
     Dates: start: 20040528
  2. TAXOTERE [Suspect]
     Indication: METASTASIS
     Dosage: 320 MG IV
     Route: 042
     Dates: start: 20040528
  3. TAXOTERE [Suspect]
     Indication: GASTRIC CANCER
     Dosage: 320 MG IV
     Route: 042
     Dates: start: 20040604
  4. TAXOTERE [Suspect]
     Indication: METASTASIS
     Dosage: 320 MG IV
     Route: 042
     Dates: start: 20040604
  5. TAXOTERE [Suspect]
     Indication: GASTRIC CANCER
     Dosage: 320 MG IV
     Route: 042
     Dates: start: 20040628
  6. TAXOTERE [Suspect]
     Indication: METASTASIS
     Dosage: 320 MG IV
     Route: 042
     Dates: start: 20040628
  7. TAXOTERE [Suspect]
     Indication: GASTRIC CANCER
     Dosage: 320 MG IV
     Route: 042
     Dates: start: 20040707
  8. TAXOTERE [Suspect]
     Indication: METASTASIS
     Dosage: 320 MG IV
     Route: 042
     Dates: start: 20040707
  9. TAXOTERE [Suspect]
     Indication: GASTRIC CANCER
     Dosage: 320 MG IV
     Route: 042
     Dates: start: 20040726
  10. TAXOTERE [Suspect]
     Indication: METASTASIS
     Dosage: 320 MG IV
     Route: 042
     Dates: start: 20040726
  11. CARBOPLATIN [Suspect]
     Dosage: 762 MG IV
     Route: 042
     Dates: start: 20040528
  12. CARBOPLATIN [Suspect]
     Dosage: 762 MG IV
     Route: 042
     Dates: start: 20040604
  13. CARBOPLATIN [Suspect]
     Dosage: 762 MG IV
     Route: 042
     Dates: start: 20040628
  14. CARBOPLATIN [Suspect]
     Dosage: 762 MG IV
     Route: 042
     Dates: start: 20040707
  15. CARBOPLATIN [Suspect]
     Dosage: 762 MG IV
     Route: 042
     Dates: start: 20040726
  16. XELODA [Suspect]
     Dosage: 75, 000 MG (TOTAL)

REACTIONS (2)
  - DEHYDRATION [None]
  - DISEASE PROGRESSION [None]
